FAERS Safety Report 15948523 (Version 4)
Quarter: 2019Q2

REPORT INFORMATION
  Report Type: Spontaneous
  Country: US (occurrence: US)
  Receive Date: 20190211
  Receipt Date: 20190617
  Transmission Date: 20190711
  Serious: Yes (Other)
  Sender: FDA-Public Use
  Company Number: US-SA-2019SA037968

PATIENT
  Age: 60 Year
  Sex: Female

DRUGS (1)
  1. KEVZARA [Suspect]
     Active Substance: SARILUMAB
     Dosage: 200 MG, QOW
     Route: 058
     Dates: start: 201812

REACTIONS (8)
  - Influenza [Unknown]
  - Nasopharyngitis [Unknown]
  - Pneumonia [Unknown]
  - Product dose omission [Unknown]
  - Drug ineffective [Unknown]
  - Unevaluable event [Unknown]
  - White blood cell count increased [Unknown]
  - Bronchitis [Unknown]
